FAERS Safety Report 25835087 (Version 1)
Quarter: 2025Q3

REPORT INFORMATION
  Report Type: Spontaneous
  Country: US (occurrence: US)
  Receive Date: 20250923
  Receipt Date: 20250923
  Transmission Date: 20251021
  Serious: Yes (Hospitalization, Other)
  Sender: REGENERON
  Company Number: US-REGENERON PHARMACEUTICALS, INC.-2025-149167

PATIENT
  Sex: Male

DRUGS (1)
  1. PRALUENT [Suspect]
     Active Substance: ALIROCUMAB
     Indication: Coronary artery disease
     Dosage: 75 MG, Q2W, EVERY 14 DAYS: STRENGTH: 75 MG/ML
     Route: 058
     Dates: start: 202503

REACTIONS (4)
  - Nephrolithiasis [Unknown]
  - Illness [Unknown]
  - Vision blurred [Unknown]
  - Product preparation error [Unknown]

NARRATIVE: CASE EVENT DATE: 20250101
